FAERS Safety Report 23643142 (Version 1)
Quarter: 2024Q1

REPORT INFORMATION
  Report Type: Spontaneous
  Country: AR (occurrence: AR)
  Receive Date: 20240318
  Receipt Date: 20240318
  Transmission Date: 20240410
  Serious: Yes (Death, Other)
  Sender: FDA-Public Use
  Company Number: AR-AMGEN-ARGSP2024053020

PATIENT
  Age: 67 Year
  Sex: Male

DRUGS (3)
  1. CARFILZOMIB [Suspect]
     Active Substance: CARFILZOMIB
     Indication: Plasma cell myeloma refractory
     Dosage: 27 MILLIGRAM/SQ. METER, 2 TIMES/WK (6 CYCLES)
     Route: 065
  2. LENALIDOMIDE [Suspect]
     Active Substance: LENALIDOMIDE
     Indication: Plasma cell myeloma refractory
     Dosage: 25 MILLIGRAM, QD
     Route: 065
  3. DEXAMETHASONE [Suspect]
     Active Substance: DEXAMETHASONE
     Indication: Plasma cell myeloma refractory
     Dosage: 40 MILLIGRAM, QWK
     Route: 065

REACTIONS (9)
  - Death [Fatal]
  - Renal failure [Unknown]
  - Cardiotoxicity [Unknown]
  - Plasma cell leukaemia [Unknown]
  - Haemoglobin decreased [Unknown]
  - Platelet count decreased [Unknown]
  - General physical health deterioration [Unknown]
  - Infection [Unknown]
  - Monoclonal immunoglobulin increased [Unknown]

NARRATIVE: CASE EVENT DATE: 20200901
